FAERS Safety Report 9476380 (Version 3)
Quarter: 2013Q4

REPORT INFORMATION
  Report Type: Spontaneous
  Country: JP (occurrence: JP)
  Receive Date: 20130826
  Receipt Date: 20131108
  Transmission Date: 20140711
  Serious: Yes (Death)
  Sender: FDA-Public Use
  Company Number: JP-PFIZER INC-2013184087

PATIENT
  Age: 76 Year
  Sex: Male
  Weight: 64.6 kg

DRUGS (16)
  1. ZYVOX [Suspect]
     Indication: STAPHYLOCOCCAL INFECTION
     Dosage: 1200 MG/DAY
     Route: 042
     Dates: start: 20120530, end: 20120608
  2. ZYVOX [Suspect]
     Indication: SEPTIC SHOCK
  3. VANCOMYCIN [Concomitant]
     Indication: STAPHYLOCOCCAL INFECTION
     Dosage: 1 G, 1X/DAY
     Route: 042
     Dates: start: 20120528, end: 20120529
  4. VANCOMYCIN [Concomitant]
     Indication: SEPTIC SHOCK
  5. SAXIZON [Concomitant]
     Indication: ADRENAL INSUFFICIENCY
     Dosage: 200 MG, 1X/DAY
     Route: 042
     Dates: start: 20120529, end: 20120529
  6. SAXIZON [Concomitant]
     Dosage: 200 MG, 2X/DAY
     Route: 042
     Dates: start: 20120530, end: 20120530
  7. SAXIZON [Concomitant]
     Dosage: 100 MG, 1X/DAY
     Dates: start: 20120531, end: 20120531
  8. SAXIZON [Concomitant]
     Dosage: 50 MG, 1X/DAY
     Dates: start: 20120601, end: 20120601
  9. NORADRENALINE [Concomitant]
     Indication: HYPOTENSION
     Dosage: AT 0.1 TO 0.6 MG/HR/DAY
     Route: 042
     Dates: start: 20120528, end: 20120606
  10. ALBUMIN NORMAL HUMAN SERUM [Concomitant]
     Indication: HYPOALBUMINAEMIA
     Dosage: 25 G, 1X/DAY
     Route: 042
     Dates: start: 20120528, end: 20120530
  11. ALBUMIN NORMAL HUMAN SERUM [Concomitant]
     Dosage: 25 G, 1X/DAY
     Route: 042
     Dates: start: 20120604, end: 20120606
  12. LANSOPRAZOLE [Concomitant]
     Indication: PROPHYLAXIS
     Dosage: 15 MG, 1X/DAY
     Route: 048
     Dates: start: 20120529, end: 20120604
  13. THYRADIN S [Concomitant]
     Indication: HYPOTHYROIDISM
     Dosage: 25 UG, 1X/DAY
     Route: 048
     Dates: start: 20120530, end: 20120612
  14. LYRICA [Concomitant]
     Indication: NEUROPATHY PERIPHERAL
     Dosage: 50 TO 75MG 1X/DAY
     Route: 048
     Dates: start: 20120426, end: 20120609
  15. CALONAL [Concomitant]
     Indication: ANALGESIC THERAPY
     Dosage: 400 MG, 2X/DAY
     Route: 048
     Dates: start: 20120508, end: 20120530
  16. MEROPENEM [Concomitant]
     Indication: SEPSIS
     Dosage: 1 G, 1X/DAY
     Route: 042
     Dates: start: 20120528, end: 20120529

REACTIONS (1)
  - Thrombocytopenia [Fatal]
